FAERS Safety Report 25374060 (Version 1)
Quarter: 2025Q2

REPORT INFORMATION
  Report Type: Spontaneous
  Country: US (occurrence: None)
  Receive Date: 20250528
  Receipt Date: 20250528
  Transmission Date: 20250717
  Serious: Yes (Hospitalization, Disabling, Other)
  Sender: FDA-CTU
  Company Number: None

PATIENT
  Age: 58 Year
  Weight: 99.79 kg

DRUGS (1)
  1. OZEMPIC [Suspect]
     Active Substance: SEMAGLUTIDE
     Indication: Impaired gastric emptying

REACTIONS (7)
  - Diarrhoea [None]
  - Impaired gastric emptying [None]
  - Suicidal ideation [None]
  - Drug ineffective [None]
  - Constipation [None]
  - Faeces discoloured [None]
  - Impaired quality of life [None]

NARRATIVE: CASE EVENT DATE: 20250402
